FAERS Safety Report 9883570 (Version 2)
Quarter: 2014Q1

REPORT INFORMATION
  Report Type: Spontaneous
  Country: IT (occurrence: IT)
  Receive Date: 20140210
  Receipt Date: 20140219
  Transmission Date: 20141002
  Serious: Yes (Other)
  Sender: FDA-Public Use
  Company Number: IT-RANBAXY-2014RR-77793

PATIENT
  Age: 44 Year
  Sex: Female

DRUGS (1)
  1. AMOXICILLIN [Suspect]
     Indication: PLEURISY
     Dosage: 1 G COMPLETE
     Route: 048
     Dates: start: 20140121, end: 20140121

REACTIONS (2)
  - Face oedema [Recovered/Resolved]
  - Generalised erythema [Recovered/Resolved]
